FAERS Safety Report 4724490-X (Version None)
Quarter: 2005Q3

REPORT INFORMATION
  Report Type: 
  Country: None (occurrence: None)
  Receive Date: 20050720
  Receipt Date: 20050720
  Transmission Date: 20060218
  Serious: Yes (Other)
  Sender: FDA-Public Use
  Company Number: None

PATIENT
  Sex: Female
  Weight: 77.5651 kg

DRUGS (2)
  1. DILTIAZEM [Suspect]
     Dosage: 240 MG DAILY
     Dates: start: 20000601
  2. RALOXIFENE HCL [Suspect]
     Dosage: 60 MG DAILY
     Dates: start: 20000601

REACTIONS (2)
  - PRURITUS [None]
  - RASH [None]
